FAERS Safety Report 4373637-6 (Version None)
Quarter: 2004Q1

REPORT INFORMATION
  Report Type: 
  Country: None (occurrence: None)
  Receive Date: 20040305
  Receipt Date: 20031223
  Transmission Date: 20041129
  Serious: Yes (Other)
  Sender: FDA-Public Use
  Company Number: 2003UW17110

PATIENT
  Age: 73 Year
  Sex: Female
  Weight: 61.2356 kg

DRUGS (3)
  1. CRESTOR [Suspect]
     Indication: BLOOD CHOLESTEROL INCREASED
     Dosage: 10 MG PO
     Route: 048
     Dates: start: 20031014
  2. LEVOTHYROXINE SODIUM [Concomitant]
  3. CAPTOPRIL [Concomitant]

REACTIONS (3)
  - DRY MOUTH [None]
  - HEADACHE [None]
  - MUSCLE CRAMP [None]
